FAERS Safety Report 8336634-1 (Version None)
Quarter: 2012Q2

REPORT INFORMATION
  Report Type: 
  Country: None (occurrence: None)
  Receive Date: 20120504
  Receipt Date: 20120425
  Transmission Date: 20120825
  Serious: Yes (Other)
  Sender: FDA-Public Use
  Company Number: GB-SANOFI-AVENTIS-2012SA029212

PATIENT
  Sex: Male

DRUGS (3)
  1. CLOPIDOGREL BISULFATE [Suspect]
     Dosage: DOSE REPORTED AS 150 (UNITS UNSPECIFIED)
     Route: 065
     Dates: start: 20120326, end: 20120403
  2. RAMIPRIL [Concomitant]
     Indication: HYPERTENSION
     Dosage: DOSE REPORTED AS 10 (UNITS UNSPECIFIED)
  3. AMLODIPINE [Concomitant]
     Indication: HYPERTENSION
     Dosage: DOSE REPORTED AS 5 (UNITS UNSPECIFIED)

REACTIONS (3)
  - SWELLING [None]
  - CONTUSION [None]
  - OFF LABEL USE [None]
